FAERS Safety Report 9835034 (Version 1)
Quarter: 2014Q1

REPORT INFORMATION
  Report Type: Spontaneous
  Country: US (occurrence: US)
  Receive Date: 20140122
  Receipt Date: 20140122
  Transmission Date: 20141002
  Serious: No
  Sender: FDA-Public Use
  Company Number: US-ACORDA-ACO_36688_2013

PATIENT
  Age: 44 Year
  Sex: Female

DRUGS (2)
  1. TIZANIDINE [Suspect]
     Indication: PAIN
     Dosage: 2 MG, 1 TAB QD
     Route: 048
     Dates: start: 20121212, end: 20130521
  2. TIZANIDINE [Suspect]
     Indication: FIBROMYALGIA
     Dosage: 2 MG, 1 TAB QD
     Route: 048
     Dates: start: 20130522

REACTIONS (1)
  - Fatigue [Unknown]
